FAERS Safety Report 14880330 (Version 1)
Quarter: 2018Q2

REPORT INFORMATION
  Report Type: Spontaneous
  Country: US (occurrence: US)
  Receive Date: 20180511
  Receipt Date: 20180511
  Transmission Date: 20180711
  Serious: Yes (Death, Life-Threatening, Hospitalization, Other)
  Sender: FDA-Public Use
  Company Number: US-LUPIN PHARMACEUTICALS INC.-2018-03524

PATIENT
  Age: 9 Year
  Sex: Female

DRUGS (2)
  1. CEFTRIAXONE. [Suspect]
     Active Substance: CEFTRIAXONE
     Indication: SICKLE CELL DISEASE
     Dosage: 2 G, UNK
     Route: 042
  2. CEFDINIR. [Concomitant]
     Active Substance: CEFDINIR
     Indication: ESCHERICHIA URINARY TRACT INFECTION
     Dosage: UNK
     Route: 065

REACTIONS (18)
  - Cardiac arrest [Fatal]
  - Myocardial ischaemia [Fatal]
  - Tachycardia [Unknown]
  - Red blood cell agglutination [Unknown]
  - Adverse drug reaction [Fatal]
  - Multiple organ dysfunction syndrome [Fatal]
  - Brain injury [Fatal]
  - Hypotension [Unknown]
  - Brain oedema [Unknown]
  - Brain death [Fatal]
  - Disseminated intravascular coagulation [Fatal]
  - Brain herniation [Unknown]
  - Hypersplenism [Unknown]
  - Mental status changes [Unknown]
  - Respiration abnormal [Unknown]
  - Intracranial pressure increased [Unknown]
  - Pulmonary oedema [Fatal]
  - Acute kidney injury [Fatal]
